FAERS Safety Report 12139568 (Version 1)
Quarter: 2016Q1

REPORT INFORMATION
  Report Type: Spontaneous
  Country: US (occurrence: US)
  Receive Date: 20160303
  Receipt Date: 20160303
  Transmission Date: 20160526
  Serious: No
  Sender: FDA-Public Use
  Company Number: US-ELI_LILLY_AND_COMPANY-US201602003154

PATIENT
  Sex: Female

DRUGS (1)
  1. CYMBALTA [Suspect]
     Active Substance: DULOXETINE HYDROCHLORIDE
     Indication: BACK PAIN
     Dosage: 60 MG, UNKNOWN
     Route: 048

REACTIONS (7)
  - Eye pain [Unknown]
  - Vision blurred [Unknown]
  - Hyperhidrosis [Unknown]
  - Insomnia [Unknown]
  - Muscle rupture [Unknown]
  - Headache [Unknown]
  - Drug ineffective [Unknown]
